FAERS Safety Report 9165002 (Version 1)
Quarter: 2013Q1

REPORT INFORMATION
  Report Type: Spontaneous
  Country: US (occurrence: US)
  Receive Date: 20130315
  Receipt Date: 20130315
  Transmission Date: 20140127
  Serious: Yes (Death, Hospitalization)
  Sender: FDA-Public Use
  Company Number: US-BAYER-2013-029861

PATIENT
  Age: 38 Year
  Sex: Female
  Weight: 109.75 kg

DRUGS (15)
  1. YAZ [Suspect]
  2. GIANVI [Suspect]
  3. OMEPRAZOLE [Concomitant]
     Dosage: 20 MG, DAILY
     Route: 048
  4. BENAZEPRIL HYDROCHLORIDE [Concomitant]
     Dosage: 40 MG, DAILY
     Route: 048
  5. FLUOXETINE HCL [Concomitant]
     Dosage: 40 MG, DAILY
     Route: 048
  6. TYLENOL W/CODEINE NO. 4 [Concomitant]
     Dosage: 1 DF, BY MOUTH THREE TIMES A DAY AS NEEDED
     Route: 048
  7. PHENTERMINE [Concomitant]
     Dosage: 37.5 MG, TAKE ONE TABLET EVERYDAY
     Route: 048
  8. CELEBREX [Concomitant]
     Dosage: 200 MG, TAKE ONE CAPSULE EVERY DAY
     Route: 048
  9. ALPRAZOLAM [Concomitant]
     Indication: ANXIETY
     Dosage: 1 MG, TAKE ONE TABLET THREE TIMES DAILY AS NEEDED
     Route: 048
  10. CIPROFLOXACIN HYDROCHLORIDE [Concomitant]
     Dosage: 500 MG, ONE TABLET TWICE A DAY FOR 10 DAYS
     Route: 048
  11. KEFLEX [Concomitant]
     Dosage: 500 MG, UNK
  12. NEO SYNEPHRINE [PHENYLEPHRINE HYDROCHLORIDE] [Concomitant]
  13. INSULIN [INSULIN] [Concomitant]
  14. PRESSORS [Concomitant]
     Indication: HYPOTENSION
  15. OXYGEN [Concomitant]

REACTIONS (3)
  - Pulmonary embolism [Fatal]
  - Deep vein thrombosis [None]
  - Pelvic venous thrombosis [None]
